FAERS Safety Report 10130072 (Version 3)
Quarter: 2014Q4

REPORT INFORMATION
  Report Type: Spontaneous
  Country: US (occurrence: US)
  Receive Date: 20140428
  Receipt Date: 20141128
  Transmission Date: 20150528
  Serious: No
  Sender: FDA-Public Use
  Company Number: US-PFIZER INC-2014112108

PATIENT
  Age: 79 Year
  Sex: Male
  Weight: 66 kg

DRUGS (7)
  1. VFEND [Suspect]
     Active Substance: VORICONAZOLE
     Dosage: UNK
  2. VFEND [Suspect]
     Active Substance: VORICONAZOLE
     Indication: LUNG INFECTION
     Dosage: 200 MG, 2X/DAY
     Dates: start: 20140417, end: 20140501
  3. GLUCOSAMINE [Concomitant]
     Active Substance: GLUCOSAMINE
     Dosage: UNK
  4. PLAVIX [Concomitant]
     Active Substance: CLOPIDOGREL BISULFATE
     Indication: ANTICOAGULANT THERAPY
     Dosage: UNK
  5. ASPIRIN. [Concomitant]
     Active Substance: ASPIRIN
     Indication: CARDIAC DISORDER
     Dosage: 81 MG, UNK
  6. LISINOPRIL. [Concomitant]
     Active Substance: LISINOPRIL
     Indication: CARDIAC DISORDER
     Dosage: 2.5 MG, DAILY
  7. ADVAIR HFA [Concomitant]
     Active Substance: FLUTICASONE PROPIONATE\SALMETEROL XINAFOATE
     Indication: LUNG DISORDER
     Dosage: (FLUTICASONE PROPIONATE 100, SALMETEROL XINAFOATE 50)

REACTIONS (6)
  - Asthenia [Unknown]
  - Intentional product misuse [Unknown]
  - Colour blindness acquired [Unknown]
  - Urogenital disorder [Unknown]
  - Somnolence [Unknown]
  - Dyspnoea [Unknown]

NARRATIVE: CASE EVENT DATE: 201404
